FAERS Safety Report 18549825 (Version 2)
Quarter: 2020Q4

REPORT INFORMATION
  Report Type: Spontaneous
  Country: IL (occurrence: IL)
  Receive Date: 20201126
  Receipt Date: 20201210
  Transmission Date: 20210114
  Serious: Yes (Hospitalization, Other)
  Sender: FDA-Public Use
  Company Number: IL-HBP-2020IL021293

PATIENT
  Age: 40 Year
  Sex: Female

DRUGS (3)
  1. ADRIAMYCIN [Concomitant]
     Active Substance: DOXORUBICIN HYDROCHLORIDE
     Indication: CHEMOTHERAPY
     Dosage: UNK, UNKNOWN
     Route: 065
     Dates: start: 202011, end: 202011
  2. IFOSFAMIDE. [Interacting]
     Active Substance: IFOSFAMIDE
     Indication: CHEMOTHERAPY
     Dosage: 2710 UNK., UNKNOWN
     Route: 065
     Dates: start: 202011, end: 202011
  3. AKYNZEO [Suspect]
     Active Substance: NETUPITANT\PALONOSETRON HYDROCHLORIDE
     Indication: PROPHYLAXIS OF NAUSEA AND VOMITING
     Dosage: UNK UNK, UNKNOWN
     Route: 065
     Dates: start: 202011, end: 202011

REACTIONS (2)
  - Encephalopathy [Recovered/Resolved]
  - Drug interaction [Recovered/Resolved]

NARRATIVE: CASE EVENT DATE: 202011
